FAERS Safety Report 14993532 (Version 1)
Quarter: 2018Q2

REPORT INFORMATION
  Report Type: Spontaneous
  Country: US (occurrence: US)
  Receive Date: 20180611
  Receipt Date: 20180611
  Transmission Date: 20180711
  Serious: Yes (Hospitalization)
  Sender: FDA-Public Use
  Company Number: US-AUROBINDO-AUR-APL-2018-030251

PATIENT
  Age: 55 Year
  Sex: Female

DRUGS (4)
  1. PREDNISONE. [Suspect]
     Active Substance: PREDNISONE
     Indication: PRODUCT USED FOR UNKNOWN INDICATION
     Dosage: 20 MG EVERY 24 H WITH A STANDARD TAPER
     Route: 065
  2. ANTITHYMOCYTE IMMUNOGLOBULIN [Suspect]
     Active Substance: THYMOCYTE IMMUNE GLOBULIN NOS
     Indication: PRODUCT USED FOR UNKNOWN INDICATION
     Dosage: TOTAL 6 MG/KG IN DIVIDED DOSES
     Route: 065
  3. TACROLIMUS. [Suspect]
     Active Substance: TACROLIMUS
     Indication: PRODUCT USED FOR UNKNOWN INDICATION
     Dosage: 3 MG EVERY 12 H
     Route: 065
  4. MYCOPHENOLIC ACID. [Suspect]
     Active Substance: MYCOPHENOLIC ACID
     Indication: PRODUCT USED FOR UNKNOWN INDICATION
     Dosage: 720 MG EVERY 12 H
     Route: 065

REACTIONS (14)
  - Clostridium difficile colitis [Unknown]
  - Abdominal distension [Unknown]
  - Infection [Recovered/Resolved]
  - Diarrhoea [Recovered/Resolved]
  - Pain [Unknown]
  - Condition aggravated [Unknown]
  - Dependent rubor [Unknown]
  - Oedema peripheral [Unknown]
  - Petechiae [Unknown]
  - Necrotising fasciitis [Recovering/Resolving]
  - Erythema [Unknown]
  - Blister [Unknown]
  - Coagulopathy [Recovered/Resolved]
  - Skin discolouration [Unknown]
